FAERS Safety Report 19764337 (Version 2)
Quarter: 2021Q3

REPORT INFORMATION
  Report Type: Spontaneous
  Country: AU (occurrence: AU)
  Receive Date: 20210830
  Receipt Date: 20210902
  Transmission Date: 20211014
  Serious: Yes (Other)
  Sender: FDA-Public Use
  Company Number: AU-BAYER-2021-200053

PATIENT
  Age: 68 Year
  Sex: Female
  Weight: 65 kg

DRUGS (4)
  1. GADOVIST [Suspect]
     Active Substance: GADOBUTROL
     Indication: MAGNETIC RESONANCE IMAGING
     Dosage: 6 ML, ONCE
     Route: 042
     Dates: start: 20210826, end: 20210826
  2. GADOVIST [Suspect]
     Active Substance: GADOBUTROL
     Indication: CRANIAL NERVE DECOMPRESSION
  3. GADOVIST [Suspect]
     Active Substance: GADOBUTROL
     Indication: ABSCESS
  4. GADOVIST [Suspect]
     Active Substance: GADOBUTROL
     Indication: NEOPLASM

REACTIONS (1)
  - Throat irritation [Recovered/Resolved]

NARRATIVE: CASE EVENT DATE: 20210826
